FAERS Safety Report 11561145 (Version 1)
Quarter: 2015Q3

REPORT INFORMATION
  Report Type: Spontaneous
  Country: US (occurrence: US)
  Receive Date: 20150916
  Receipt Date: 20150916
  Transmission Date: 20151125
  Serious: No
  Sender: FDA-Public Use
  Company Number: US-ELI_LILLY_AND_COMPANY-US200810004577

PATIENT
  Age: 61 Year
  Sex: Female

DRUGS (2)
  1. FORTEO [Suspect]
     Active Substance: TERIPARATIDE
     Dosage: UNK, UNK
  2. FORTEO [Suspect]
     Active Substance: TERIPARATIDE
     Indication: OSTEOPOROSIS
     Dosage: UNK, UNK
     Dates: start: 200805

REACTIONS (9)
  - Pain in extremity [Not Recovered/Not Resolved]
  - Hair texture abnormal [Recovering/Resolving]
  - Anxiety [Unknown]
  - Arthralgia [Not Recovered/Not Resolved]
  - Nervousness [Unknown]
  - Muscle spasms [Unknown]
  - Injection site erythema [Unknown]
  - Injection site pain [Unknown]
  - Injection site bruising [Unknown]

NARRATIVE: CASE EVENT DATE: 2008
